FAERS Safety Report 9144534 (Version 1)
Quarter: 2013Q1

REPORT INFORMATION
  Report Type: Spontaneous
  Country: US (occurrence: US)
  Receive Date: 20130306
  Receipt Date: 20130306
  Transmission Date: 20140127
  Serious: Yes (Other)
  Sender: FDA-Public Use
  Company Number: US-WATSON-2013-03149

PATIENT
  Age: 50 Year
  Sex: Male
  Weight: 82 kg

DRUGS (4)
  1. FENTANYL [Suspect]
     Indication: PAIN
     Dosage: 1 PATCH Q 72 HRS
     Route: 062
     Dates: start: 20130205
  2. PERCOCET                           /00446701/ [Concomitant]
     Indication: PAIN
     Dosage: 1 TABLET, TID
     Route: 048
     Dates: start: 201205
  3. BACLOFEN [Concomitant]
     Indication: MUSCLE SPASMS
     Dosage: 20 MG, 1 TABLET Q 6 HRS
     Route: 048
     Dates: start: 201205
  4. GABAPENTIN [Concomitant]
     Indication: NEUROPATHY PERIPHERAL
     Dosage: 300 MG, QID
     Route: 048
     Dates: start: 201205

REACTIONS (7)
  - Road traffic accident [Unknown]
  - Confusional state [Recovered/Resolved]
  - Disorientation [Recovered/Resolved]
  - Impaired driving ability [Recovered/Resolved]
  - Feeling abnormal [None]
  - Device leakage [None]
  - Device failure [None]
